FAERS Safety Report 5262602-2 (Version None)
Quarter: 2007Q1

REPORT INFORMATION
  Report Type: 
  Country: None (occurrence: None)
  Receive Date: 20070312
  Receipt Date: 20070220
  Transmission Date: 20070707
  Serious: Yes (Other)
  Sender: FDA-Public Use
  Company Number: CA-AMGEN-US212421

PATIENT
  Age: 41 Year
  Sex: Female

DRUGS (3)
  1. ENBREL [Suspect]
     Indication: RHEUMATOID ARTHRITIS
     Route: 065
  2. LEFLUNOMIDE [Concomitant]
     Route: 065
  3. ROFECOXIB [Concomitant]
     Route: 065

REACTIONS (2)
  - PUSTULAR PSORIASIS [None]
  - RHEUMATOID ARTHRITIS [None]
